FAERS Safety Report 25018044 (Version 1)
Quarter: 2025Q1

REPORT INFORMATION
  Report Type: Spontaneous
  Country: US (occurrence: None)
  Receive Date: 20250227
  Receipt Date: 20250227
  Transmission Date: 20250409
  Serious: Yes (Hospitalization)
  Sender: FDA-CTU
  Company Number: None

PATIENT
  Age: 14 Year
  Sex: Female
  Weight: 46.6 kg

DRUGS (1)
  1. BENADRYL [Suspect]
     Active Substance: DIPHENHYDRAMINE HYDROCHLORIDE
     Route: 048

REACTIONS (6)
  - Accidental overdose [None]
  - Hallucination, visual [None]
  - Hallucination, auditory [None]
  - Tachycardia [None]
  - Mydriasis [None]
  - Agitation [None]

NARRATIVE: CASE EVENT DATE: 20250225
